FAERS Safety Report 6373594-7 (Version None)
Quarter: 2009Q3

REPORT INFORMATION
  Report Type: 
  Country: None (occurrence: None)
  Receive Date: 20090924
  Receipt Date: 20090917
  Transmission Date: 20100115
  Serious: Yes (Other)
  Sender: FDA-Public Use
  Company Number: GT-JNJFOC-20090906070

PATIENT
  Age: 70 Year
  Sex: Male

DRUGS (1)
  1. REMINYL [Suspect]
     Indication: DRUG USE FOR UNKNOWN INDICATION
     Route: 065

REACTIONS (2)
  - NERVOUSNESS [None]
  - PSYCHOMOTOR HYPERACTIVITY [None]
